FAERS Safety Report 5506688-6 (Version None)
Quarter: 2007Q4

REPORT INFORMATION
  Report Type: 
  Country: None (occurrence: None)
  Receive Date: 20071105
  Receipt Date: 20071030
  Transmission Date: 20080405
  Serious: Yes (Death)
  Sender: FDA-Public Use
  Company Number: JP-ASTRAZENECA-2007AP06515

PATIENT
  Age: 12215 Day
  Sex: Female

DRUGS (1)
  1. XYLOCAINE SOLUTION 4% [Suspect]
     Indication: LOCAL ANAESTHESIA
     Route: 045
     Dates: start: 20050122, end: 20050122

REACTIONS (1)
  - ANAPHYLACTIC SHOCK [None]
